FAERS Safety Report 21727813 (Version 1)
Quarter: 2022Q4

REPORT INFORMATION
  Report Type: Report from Study
  Country: US (occurrence: US)
  Receive Date: 20221214
  Receipt Date: 20221214
  Transmission Date: 20230113
  Serious: Yes (Hospitalization)
  Sender: FDA-Public Use
  Company Number: US-002147023-NVSC2022US284628

PATIENT
  Sex: Male

DRUGS (1)
  1. COSENTYX [Suspect]
     Active Substance: SECUKINUMAB
     Indication: Ankylosing spondylitis
     Dosage: 300 MG/KG, OTHER (WEEK 0, 1, 2, 3, 4 AND EVERY 4 WEEKS THEREAFTER)
     Route: 058

REACTIONS (2)
  - Psychotic disorder [Unknown]
  - Paranoia [Unknown]
